FAERS Safety Report 23936343 (Version 1)
Quarter: 2024Q2

REPORT INFORMATION
  Report Type: Spontaneous
  Country: CA (occurrence: CA)
  Receive Date: 20240604
  Receipt Date: 20240604
  Transmission Date: 20240716
  Serious: Yes (Other)
  Sender: FDA-Public Use
  Company Number: CA-B.Braun Medical Inc.-2157714

PATIENT
  Age: 67 Year
  Sex: Female
  Weight: 34 kg

DRUGS (22)
  1. CALCIUM GLUCONATE [Suspect]
     Active Substance: CALCIUM GLUCONATE
  2. THEOPHYLLINE [Suspect]
     Active Substance: THEOPHYLLINE
  3. CEFADROXIL [Concomitant]
     Active Substance: CEFADROXIL
  4. TRAMADOL HYDROCHLORIDE [Suspect]
     Active Substance: TRAMADOL HYDROCHLORIDE
  5. ACETAMINOPHEN\TRAMADOL [Suspect]
     Active Substance: ACETAMINOPHEN\TRAMADOL
  6. SINGULAIR [Suspect]
     Active Substance: MONTELUKAST SODIUM
  7. RISEDRONATE SODIUM [Suspect]
     Active Substance: RISEDRONATE SODIUM
  8. CIPROFLOXACIN [Suspect]
     Active Substance: CIPROFLOXACIN
  9. CALCIUM CARBONATE [Suspect]
     Active Substance: CALCIUM CARBONATE
  10. ROSUVASTATIN CALCIUM [Suspect]
     Active Substance: ROSUVASTATIN CALCIUM
  11. RITUXIMAB [Suspect]
     Active Substance: RITUXIMAB
  12. PREDNISONE [Suspect]
     Active Substance: PREDNISONE
  13. OMALIZUMAB [Suspect]
     Active Substance: OMALIZUMAB
  14. MOXIFLOXACIN HYDROCHLORIDE [Suspect]
     Active Substance: MOXIFLOXACIN HYDROCHLORIDE\MOXIFLOXACIN HYDROCHLORIDE MONOHYDRATE
  15. FOLATE SODIUM [Suspect]
     Active Substance: FOLATE SODIUM
  16. ERGOCALCIFEROL [Suspect]
     Active Substance: ERGOCALCIFEROL
  17. CLONAZEPAM [Suspect]
     Active Substance: CLONAZEPAM
  18. BECLOMETHASONE [Suspect]
     Active Substance: BECLOMETHASONE
  19. AMLODIPINE BESYLATE [Suspect]
     Active Substance: AMLODIPINE BESYLATE
  20. ADVAIR HFA [Suspect]
     Active Substance: FLUTICASONE PROPIONATE\SALMETEROL XINAFOATE
  21. ASPIRIN [Suspect]
     Active Substance: ASPIRIN
  22. ACETAMINOPHEN\TRAMADOL [Suspect]
     Active Substance: ACETAMINOPHEN\TRAMADOL

REACTIONS (13)
  - Asthma [Not Recovered/Not Resolved]
  - Vomiting [Not Recovered/Not Resolved]
  - Wheezing [Not Recovered/Not Resolved]
  - Respiratory tract infection [Not Recovered/Not Resolved]
  - Pneumonia [Not Recovered/Not Resolved]
  - Pain [Not Recovered/Not Resolved]
  - Oedema [Not Recovered/Not Resolved]
  - Nasal oedema [Not Recovered/Not Resolved]
  - Malaise [Not Recovered/Not Resolved]
  - Dyspnoea [Not Recovered/Not Resolved]
  - Drug hypersensitivity [Not Recovered/Not Resolved]
  - Cough [Not Recovered/Not Resolved]
  - Chest pain [Not Recovered/Not Resolved]
